FAERS Safety Report 6922517-8 (Version None)
Quarter: 2010Q3

REPORT INFORMATION
  Report Type: 
  Country: None (occurrence: None)
  Receive Date: 20100813
  Receipt Date: 20100804
  Transmission Date: 20110219
  Serious: Yes (Other)
  Sender: FDA-Public Use
  Company Number: CN-JNJFOC-20100801797

PATIENT
  Age: 50 Year
  Sex: Female

DRUGS (2)
  1. SPORANOX [Suspect]
     Indication: DERMATOPHYTOSIS
     Route: 048
  2. SPORANOX [Suspect]
     Route: 048

REACTIONS (4)
  - ANAPHYLACTIC REACTION [None]
  - NASOPHARYNGITIS [None]
  - PRURITUS [None]
  - VITAMIN B1 DEFICIENCY [None]
